FAERS Safety Report 6717610-9 (Version None)
Quarter: 2010Q2

REPORT INFORMATION
  Report Type: 
  Country: None (occurrence: None)
  Receive Date: 20100510
  Receipt Date: 20100507
  Transmission Date: 20101027
  Serious: Yes (Life-Threatening, Hospitalization)
  Sender: FDA-Public Use
  Company Number: DE-JNJFOC-20100403465

PATIENT
  Age: 44 Year
  Sex: Male

DRUGS (1)
  1. TAVANIC [Suspect]
     Indication: PROPHYLAXIS
     Route: 048

REACTIONS (3)
  - CARDIOVASCULAR DISORDER [None]
  - DYSPNOEA [None]
  - HYPERSENSITIVITY [None]
